FAERS Safety Report 24096422 (Version 1)
Quarter: 2024Q3

REPORT INFORMATION
  Report Type: Spontaneous
  Country: FR (occurrence: FR)
  Receive Date: 20240716
  Receipt Date: 20240716
  Transmission Date: 20241017
  Serious: Yes (Hospitalization)
  Sender: PIERRE FABRE MEDICAMENT
  Company Number: None

PATIENT

DRUGS (19)
  1. PROPRANOLOL [Suspect]
     Active Substance: PROPRANOLOL HYDROCHLORIDE
     Indication: Product used for unknown indication
     Dosage: 40 MG PER DAY
     Route: 048
     Dates: start: 20240511
  2. VALPROATE SODIUM [Suspect]
     Active Substance: VALPROATE SODIUM
     Indication: Psychotic disorder
     Dosage: 250 MG, BID (2/DAY) (MORNING AND EVENING)
     Route: 048
     Dates: start: 20240511, end: 20240513
  3. VALPROATE SODIUM [Suspect]
     Active Substance: VALPROATE SODIUM
     Dosage: 500 MG, BID (2/DAY) (MORNING AND EVENING)
     Route: 048
     Dates: start: 20240514, end: 20240524
  4. LOXAPINE [Suspect]
     Active Substance: LOXAPINE
     Indication: Psychotic disorder
     Dosage: 25 MG PER DAY
     Route: 048
     Dates: start: 20240510, end: 20240606
  5. LOXAPINE [Suspect]
     Active Substance: LOXAPINE
     Dosage: 25 MG PER DAY
     Route: 048
     Dates: start: 20240612, end: 20240612
  6. QUETIAPINE [Suspect]
     Active Substance: QUETIAPINE
     Indication: Psychotic disorder
     Dosage: 100 MG PER DAY
     Route: 048
     Dates: start: 20240524, end: 20240528
  7. QUETIAPINE [Suspect]
     Active Substance: QUETIAPINE
     Dosage: 200 MG PER DAY
     Route: 048
     Dates: start: 20240529, end: 20240604
  8. QUETIAPINE [Suspect]
     Active Substance: QUETIAPINE
     Dosage: 400 MG PER DAY
     Route: 048
     Dates: start: 20240605, end: 20240619
  9. QUETIAPINE [Suspect]
     Active Substance: QUETIAPINE
     Dosage: 300 MG PER DAY
     Route: 048
     Dates: start: 20240620, end: 20240623
  10. QUETIAPINE [Suspect]
     Active Substance: QUETIAPINE
     Dosage: 200 MG PER DAY
     Route: 048
     Dates: start: 20240624, end: 20240702
  11. MODAFINIL [Suspect]
     Active Substance: MODAFINIL
     Indication: Narcolepsy
     Dosage: 200 MG PER DAY
     Route: 048
     Dates: start: 20240516
  12. ARIPIPRAZOLE [Suspect]
     Active Substance: ARIPIPRAZOLE
     Indication: Psychotic disorder
     Dosage: 20 MG PER DAY
     Route: 048
     Dates: start: 20240518, end: 20240519
  13. ARIPIPRAZOLE [Suspect]
     Active Substance: ARIPIPRAZOLE
     Dosage: 10 MG PER DAY
     Route: 048
     Dates: start: 20240522, end: 20240523
  14. LOXAPINE [Suspect]
     Active Substance: LOXAPINE
     Indication: Psychotic disorder
     Dosage: 15 DROPS AS NECESSARY
     Route: 048
     Dates: start: 20240515, end: 20240606
  15. NICOTINE [Concomitant]
     Active Substance: NICOTINE
     Indication: Ex-tobacco user
     Dosage: 7 MG PER DAY
     Route: 023
     Dates: start: 20240522
  16. TRAMADOL HYDROCHLORIDE [Concomitant]
     Active Substance: TRAMADOL HYDROCHLORIDE
     Indication: Fibromyalgia
     Dosage: 50 MG PER DAY
     Route: 048
     Dates: start: 20240511
  17. ACETAMINOPHEN [Concomitant]
     Active Substance: ACETAMINOPHEN
     Indication: Pain
     Dosage: 1 G AS NECESSARY
     Route: 048
  18. LEVOTHYROXINE [Concomitant]
     Active Substance: LEVOTHYROXINE\LEVOTHYROXINE SODIUM
     Indication: Hypothyroidism
     Dosage: 25 UG PER DAY
     Route: 065
  19. POLYETHYLENE GLYCOL 4000 [Concomitant]
     Active Substance: POLYETHYLENE GLYCOL 4000
     Indication: Constipation
     Dosage: 1 DF
     Route: 048

REACTIONS (9)
  - Thrombocytopenia [Recovered/Resolved]
  - Neutropenia [Recovered/Resolved]
  - Neutropenia [Recovered/Resolved]
  - Neutropenia [Recovered/Resolved]
  - Thrombocytopenia [Recovered/Resolved]
  - Neutropenia [Not Recovered/Not Resolved]
  - Thrombocytopenia [Not Recovered/Not Resolved]
  - Product use issue [Unknown]
  - Off label use [Unknown]

NARRATIVE: CASE EVENT DATE: 20240522
